FAERS Safety Report 10680638 (Version 3)
Quarter: 2015Q2

REPORT INFORMATION
  Report Type: Spontaneous
  Country: US (occurrence: US)
  Receive Date: 20141229
  Receipt Date: 20150407
  Transmission Date: 20150821
  Serious: Yes (Hospitalization, Other)
  Sender: FDA-Public Use
  Company Number: US-SA-2014SA118715

PATIENT
  Age: 57 Year
  Sex: Male

DRUGS (52)
  1. PLAVIX [Suspect]
     Active Substance: CLOPIDOGREL BISULFATE
     Indication: VASCULAR GRAFT
     Route: 048
     Dates: start: 20090709, end: 20090712
  2. METRONIDAZOLE. [Concomitant]
     Active Substance: METRONIDAZOLE
     Dosage: DOSE: 500 MG/100 ML
     Dates: start: 20090719, end: 20090719
  3. ALPRAZOLAM. [Concomitant]
     Active Substance: ALPRAZOLAM
     Dosage: DOSE: 0.25=0.5 TABS
     Route: 048
     Dates: start: 20090715, end: 20090715
  4. AMIODARONE [Concomitant]
     Active Substance: AMIODARONE
     Dosage: DOSE: 150 MG=3 ML
     Route: 042
     Dates: start: 20090716, end: 20090717
  5. PROPOFOL. [Concomitant]
     Active Substance: PROPOFOL
     Dosage: DOSE: 1000MG/100 ML
     Dates: start: 20090719, end: 20090719
  6. NOREPINEPHRINE [Concomitant]
     Active Substance: NOREPINEPHRINE\NOREPINEPHRINE BITARTRATE
     Dosage: DOSE: 4MG=250ML
     Route: 042
     Dates: start: 20090727, end: 20090727
  7. ALBUMIN [Concomitant]
     Active Substance: ALBUMIN (HUMAN)
     Dosage: DOSE: 25 G/500 ML
     Dates: start: 20090722
  8. FUROSEMIDE. [Concomitant]
     Active Substance: FUROSEMIDE
     Route: 048
     Dates: start: 20090717, end: 20090717
  9. ASPIRIN. [Concomitant]
     Active Substance: ASPIRIN
     Indication: HEADACHE
     Route: 048
     Dates: start: 20090718
  10. BUPROPION [Concomitant]
     Active Substance: BUPROPION
     Dosage: DOSE: 150MG=1 TAB
     Route: 048
     Dates: start: 20090914
  11. CHLORHEXIDINE [Concomitant]
     Active Substance: CHLORHEXIDINE
     Route: 061
     Dates: start: 20090718
  12. GABAPENTIN. [Concomitant]
     Active Substance: GABAPENTIN
     Route: 048
     Dates: start: 20090715
  13. HYDRALAZINE [Concomitant]
     Active Substance: HYDRALAZINE HYDROCHLORIDE
     Route: 042
     Dates: start: 20090718
  14. PIPERACILLIN [Concomitant]
     Active Substance: PIPERACILLIN
     Dates: start: 20090721, end: 20090721
  15. OXYCODONE [Concomitant]
     Active Substance: OXYCODONE
     Dosage: DOSE: 1-2 TABS Q6HR, PRN
     Route: 048
     Dates: start: 20090713, end: 20090714
  16. DOCUSATE SODIUM. [Concomitant]
     Active Substance: DOCUSATE SODIUM
     Route: 048
     Dates: start: 20090917
  17. AMOXICILLIN. [Concomitant]
     Active Substance: AMOXICILLIN
     Dates: start: 20080811
  18. POTASSIUM CHLORIDE. [Concomitant]
     Active Substance: POTASSIUM CHLORIDE
     Dosage: DOSE: 20 MEQ/15 ML
     Route: 048
     Dates: start: 20090718, end: 20090718
  19. SODIUM CHLORIDE. [Concomitant]
     Active Substance: SODIUM CHLORIDE
     Route: 042
     Dates: start: 20090819, end: 20090819
  20. PRAVASTATIN [Concomitant]
     Active Substance: PRAVASTATIN\PRAVASTATIN SODIUM
     Dosage: DOSE: 2 TABS=80 MG, QHS
     Route: 048
     Dates: start: 20090714, end: 20090714
  21. MAALOX ANTACID [Concomitant]
     Active Substance: ALUMINUM HYDROXIDE\DIMETHICONE\MAGNESIUM HYDROXIDE
     Dosage: 15 ML
     Route: 048
     Dates: start: 20090718, end: 20090718
  22. DOCUSATE SODIUM. [Concomitant]
     Active Substance: DOCUSATE SODIUM
     Route: 048
     Dates: start: 20090916
  23. ALTEPLASE [Concomitant]
     Active Substance: ALTEPLASE
     Route: 042
     Dates: start: 20090811, end: 20090811
  24. ALTEPLASE [Concomitant]
     Active Substance: ALTEPLASE
     Route: 042
     Dates: start: 20090813, end: 20090813
  25. CHLORHEXIDINE [Concomitant]
     Active Substance: CHLORHEXIDINE
     Route: 061
     Dates: start: 20090714
  26. HYDRALAZINE [Concomitant]
     Active Substance: HYDRALAZINE HYDROCHLORIDE
     Route: 042
     Dates: start: 20090804
  27. POTASSIUM CHLORIDE. [Concomitant]
     Active Substance: POTASSIUM CHLORIDE
     Dosage: DOSE: 40 MEQ
     Route: 048
     Dates: start: 20090722, end: 20090722
  28. METOPROLOL [Concomitant]
     Active Substance: METOPROLOL
     Dosage: DOSE: 12.5 MG=0.5 TABS
     Route: 048
     Dates: start: 20090718, end: 20090718
  29. VANCOMYCIN [Concomitant]
     Active Substance: VANCOMYCIN
     Dosage: DOSE: 1500 MG=15ML, Q12 H
     Dates: start: 20090715, end: 20090715
  30. NITROGLYCERINE [Concomitant]
     Active Substance: NITROGLYCERIN
     Dosage: DOSE: 50MG=250ML
     Route: 042
     Dates: start: 20090714, end: 20090715
  31. FLUCONAZOLE. [Concomitant]
     Active Substance: FLUCONAZOLE
     Dosage: DOSE: 200 MG/100ML
     Dates: start: 20090915
  32. BISACODYL. [Concomitant]
     Active Substance: BISACODYL
     Dates: start: 20090812, end: 20090812
  33. GABAPENTIN. [Concomitant]
     Active Substance: GABAPENTIN
     Route: 048
     Dates: start: 20090714, end: 20090714
  34. MAGNESIUM SULFATE. [Concomitant]
     Active Substance: MAGNESIUM SULFATE
     Dosage: DOSE: 2G/50ML, INFUSE OVER 4 HOURS
     Dates: start: 20090708, end: 20090708
  35. PANTOPRAZOLE [Concomitant]
     Active Substance: PANTOPRAZOLE SODIUM
     Route: 048
     Dates: start: 20090719, end: 20090719
  36. TRAZODONE [Concomitant]
     Active Substance: TRAZODONE HYDROCHLORIDE
     Route: 048
     Dates: start: 20090714, end: 20090714
  37. ACETAMINOPHEN. [Concomitant]
     Active Substance: ACETAMINOPHEN
     Dosage: DOSE: 650 MG=2 TABS
     Route: 048
     Dates: start: 20090815, end: 20090815
  38. KETOROLAC [Concomitant]
     Active Substance: KETOROLAC\KETOROLAC TROMETHAMINE
     Dosage: DOSE: 15 MG/1ML
     Route: 042
     Dates: start: 20090716, end: 20090719
  39. CLARITHROMYCIN. [Concomitant]
     Active Substance: CLARITHROMYCIN
     Dates: start: 20090811, end: 20090824
  40. POTASSIUM CHLORIDE. [Concomitant]
     Active Substance: POTASSIUM CHLORIDE
     Dosage: DOSE: 20 MEQ/15 ML
     Route: 048
     Dates: start: 20090716, end: 20090716
  41. METRONIDAZOLE. [Concomitant]
     Active Substance: METRONIDAZOLE
     Dosage: DOSE: 500 MG/100 ML
     Dates: start: 20090722, end: 20090722
  42. MIDAZOLAM [Concomitant]
     Active Substance: MIDAZOLAM\MIDAZOLAM HYDROCHLORIDE
     Dosage: DOSE: 2 MG=2ML
     Route: 042
     Dates: start: 20090814, end: 20090814
  43. SODIUM BICARBONATE. [Concomitant]
     Active Substance: SODIUM BICARBONATE
     Dosage: DOSE: 100 MEQ
     Dates: start: 20090721, end: 20090721
  44. ONDANSETRON [Concomitant]
     Active Substance: ONDANSETRON
     Dosage: DOSE: 4MG=2ML
     Dates: start: 20090803, end: 20090803
  45. PROMETHAZINE [Concomitant]
     Active Substance: PROMETHAZINE\PROMETHAZINE HYDROCHLORIDE
     Dosage: DOSE: 12.5 MG=0.5MGL, Q4HR, PRN
     Route: 042
     Dates: start: 20090718, end: 20090718
  46. PROPOFOL. [Concomitant]
     Active Substance: PROPOFOL
     Dosage: DOSE: 1000MG/100 ML
     Dates: start: 20090715, end: 20090716
  47. ASPIRIN. [Concomitant]
     Active Substance: ASPIRIN
     Indication: HEADACHE
     Route: 048
     Dates: start: 20090714, end: 20090714
  48. CLONIDINE. [Concomitant]
     Active Substance: CLONIDINE
     Route: 061
     Dates: start: 20090814
  49. FAMOTIDINE. [Concomitant]
     Active Substance: FAMOTIDINE
     Dosage: DOSE: 2ML=20MG Q12 H
     Dates: start: 20090715, end: 20090716
  50. FENTANYL. [Concomitant]
     Active Substance: FENTANYL
     Dosage: DOSE: 250MCG/MG
     Dates: start: 20090814, end: 20090814
  51. MAGNESIUM CHLORIDE. [Concomitant]
     Active Substance: MAGNESIUM CHLORIDE
     Route: 048
     Dates: start: 20090718
  52. MUPIROCIN. [Concomitant]
     Active Substance: MUPIROCIN
     Dosage: DOSE: 10 DOSE(S) BID
     Route: 061
     Dates: start: 20090715, end: 20090715

REACTIONS (10)
  - Renal disorder [Not Recovered/Not Resolved]
  - Sinus disorder [Not Recovered/Not Resolved]
  - Spinal disorder [Unknown]
  - Condition aggravated [Unknown]
  - Headache [Unknown]
  - Libido decreased [Unknown]
  - Gastrointestinal haemorrhage [Unknown]
  - Amnesia [Unknown]
  - Gastric disorder [Unknown]
  - Staphylococcal infection [Not Recovered/Not Resolved]

NARRATIVE: CASE EVENT DATE: 200907
